FAERS Safety Report 6272629-X (Version None)
Quarter: 2009Q3

REPORT INFORMATION
  Report Type: 
  Country: None (occurrence: None)
  Receive Date: 20090717
  Receipt Date: 20090710
  Transmission Date: 20100115
  Serious: Yes (Hospitalization, Other)
  Sender: FDA-Public Use
  Company Number: US-ASTRAZENECA-2006UW25010

PATIENT
  Age: 34 Year
  Sex: Female
  Weight: 107 kg

DRUGS (45)
  1. SEROQUEL [Suspect]
     Indication: INSOMNIA
     Route: 048
     Dates: start: 19980101, end: 20040101
  2. SEROQUEL [Suspect]
     Dosage: 20-600 MG
     Route: 048
     Dates: start: 19991006
  3. GEODON [Concomitant]
     Dates: start: 20060101
  4. HALDOL [Concomitant]
     Dates: start: 19990101
  5. TRILAFON [Concomitant]
     Dates: start: 19980101
  6. AMBIEN [Concomitant]
  7. COGENTIN [Concomitant]
  8. DEPAKOTE [Concomitant]
  9. TRAZODONE [Concomitant]
  10. EFFEXOR XR [Concomitant]
  11. GLUCOPHAGE [Concomitant]
  12. ACTOS [Concomitant]
  13. AMARYL [Concomitant]
  14. NEURONTIN [Concomitant]
  15. LIPITOR [Concomitant]
  16. PRILOSEC [Concomitant]
  17. COMBIVENT [Concomitant]
  18. CLARITIN [Concomitant]
  19. DILANTIN [Concomitant]
  20. DROPERIDOL [Concomitant]
  21. PROPULSID [Concomitant]
  22. PHENERGAN [Concomitant]
  23. PREDNISONE [Concomitant]
  24. TRILEPTAL [Concomitant]
  25. TOPAMAX [Concomitant]
  26. NEXIUM [Concomitant]
  27. PROTONIX [Concomitant]
  28. ZOCOR [Concomitant]
  29. SYNTHROID [Concomitant]
  30. ZYPREXA [Concomitant]
  31. ATIVAN [Concomitant]
  32. PAXIL [Concomitant]
  33. BUSPAR [Concomitant]
  34. VICODIN [Concomitant]
  35. PEN-VEE K [Concomitant]
  36. TAMIFLU [Concomitant]
  37. RISPERDAL [Concomitant]
  38. LOMOTIL [Concomitant]
  39. AVANDIA [Concomitant]
  40. NOVOLIN 70/30 [Concomitant]
  41. ATARAX [Concomitant]
  42. REGLAN [Concomitant]
  43. PEPCID [Concomitant]
  44. SERZONE [Concomitant]
  45. DOCUSATE SODIUM [Concomitant]

REACTIONS (6)
  - DIABETES MELLITUS [None]
  - DIABETES MELLITUS INADEQUATE CONTROL [None]
  - DIABETIC NEUROPATHY [None]
  - HYPERGLYCAEMIA [None]
  - KETOACIDOSIS [None]
  - PANCREATITIS [None]
